FAERS Safety Report 4616904-0 (Version None)
Quarter: 2005Q1

REPORT INFORMATION
  Report Type: 
  Country: None (occurrence: None)
  Receive Date: 20050321
  Receipt Date: 20050308
  Transmission Date: 20050727
  Serious: Yes (Hospitalization, Other)
  Sender: FDA-Public Use
  Company Number: 2005033448

PATIENT
  Age: 69 Year
  Sex: Female
  Weight: 74 kg

DRUGS (9)
  1. ZOLOFT [Suspect]
     Indication: ILL-DEFINED DISORDER
     Dosage: 50 MG (1 IN 1 D), ORAL
     Route: 048
     Dates: end: 20040101
  2. ARICEPT [Suspect]
     Indication: ILL-DEFINED DISORDER
     Dosage: (1 IN 1 D), ORAL
     Route: 048
     Dates: end: 20040101
  3. TRAMADOL HCL [Suspect]
     Indication: ILL-DEFINED DISORDER
     Dosage: 5 MG (1 IN 1 D), ORAL
     Route: 048
     Dates: end: 20040101
  4. MEMANTINE HCL [Suspect]
     Indication: ILL-DEFINED DISORDER
     Dosage: 5MG (1 IN 1 D), ORAL
     Route: 048
     Dates: end: 20040305
  5. LABETALOL HYDROCHLORIDE [Concomitant]
  6. ALDACTAZINE (ALTIZIDE, SPIRONOLACTONE) [Concomitant]
  7. OMEPRAZOLE [Concomitant]
  8. ALPRAZOLAM [Concomitant]
  9. TRIMEBUTINE MALEATE (TRIMEBUTINE MALEATE) [Concomitant]

REACTIONS (16)
  - ABDOMINAL PAIN [None]
  - ABNORMAL BEHAVIOUR [None]
  - ANXIETY [None]
  - CONDITION AGGRAVATED [None]
  - CONFUSIONAL STATE [None]
  - CONSTIPATION [None]
  - CRYING [None]
  - DEMENTIA ALZHEIMER'S TYPE [None]
  - DEPRESSION [None]
  - ERUCTATION [None]
  - HALLUCINATION, VISUAL [None]
  - HYPOKALAEMIA [None]
  - PSYCHOMOTOR AGITATION [None]
  - SERUM SEROTONIN INCREASED [None]
  - SPEECH DISORDER [None]
  - TREMOR [None]
